FAERS Safety Report 10143354 (Version 2)
Quarter: 2014Q2

REPORT INFORMATION
  Report Type: Report from Study
  Country: CA (occurrence: CA)
  Receive Date: 20140430
  Receipt Date: 20140604
  Transmission Date: 20141212
  Serious: Yes (Other)
  Sender: FDA-Public Use
  Company Number: PHHY2014CA052161

PATIENT
  Age: 48 Year
  Sex: Male

DRUGS (1)
  1. CLOZARIL [Suspect]
     Dates: start: 20090329

REACTIONS (2)
  - Bundle branch block right [Unknown]
  - Electrocardiogram abnormal [Unknown]
